FAERS Safety Report 5118143-6 (Version None)
Quarter: 2006Q3

REPORT INFORMATION
  Report Type: 
  Country: None (occurrence: None)
  Receive Date: 20060926
  Receipt Date: 20060913
  Transmission Date: 20061208
  Serious: Yes (Hospitalization, Other)
  Sender: FDA-Public Use
  Company Number: 2006111586

PATIENT
  Age: 64 Year
  Sex: Female

DRUGS (4)
  1. ZITHROMAX [Suspect]
     Indication: BRONCHITIS
     Dosage: 500 MG, ORAL
     Route: 048
     Dates: start: 20060908, end: 20060908
  2. TARIVID (OFLOXACIN) [Concomitant]
  3. HOKUNALIN (TULOBUTEROL HYDROCHLORIDE) [Concomitant]
  4. MUCOSOLVAN (AMBROXOL HYDROCHLORIDE) [Concomitant]

REACTIONS (4)
  - COLITIS ISCHAEMIC [None]
  - DIARRHOEA [None]
  - MELAENA [None]
  - VOMITING [None]
